FAERS Safety Report 7521995-3 (Version None)
Quarter: 2011Q2

REPORT INFORMATION
  Report Type: 
  Country: None (occurrence: None)
  Receive Date: 20110512
  Receipt Date: 20110421
  Transmission Date: 20111010
  Serious: Yes (Other)
  Sender: FDA-Public Use
  Company Number: 302719998-2011-004

PATIENT
  Age: 58 Year
  Sex: Female

DRUGS (6)
  1. PLATE LOW PROFILE CROSSLINK [Concomitant]
  2. STAPLES (DEPUY) [Concomitant]
  3. COUGAR LS CAGE (DEPUY) [Concomitant]
  4. CORTICAL CANCELLOUS 30CC (MTF) [Concomitant]
  5. INFUSE (MSD) [Concomitant]
  6. BIO DBM BOAT BONE TISSUE HUMAN [Suspect]

REACTIONS (5)
  - STAPHYLOCOCCUS TEST POSITIVE [None]
  - POST PROCEDURAL INFECTION [None]
  - BACTEROIDES TEST POSITIVE [None]
  - PEPTOSTREPTOCOCCUS TEST POSITIVE [None]
  - WOUND DEHISCENCE [None]
